FAERS Safety Report 5739753-9 (Version None)
Quarter: 2008Q2

REPORT INFORMATION
  Report Type: 
  Country: None (occurrence: None)
  Receive Date: 20080512
  Receipt Date: 20080512
  Transmission Date: 20081010
  Serious: Yes (Life-Threatening, Hospitalization)
  Sender: FDA-Public Use
  Company Number: None

PATIENT
  Age: 72 Year
  Sex: Male

DRUGS (2)
  1. CEFAZOLIN [Suspect]
     Indication: PREOPERATIVE CARE
     Dosage: ONCE IV DRIP PRE-OP X 1 DOSE
     Route: 041
  2. CEFAZOLIN [Suspect]
     Indication: PROPHYLAXIS
     Dosage: ONCE IV DRIP PRE-OP X 1 DOSE
     Route: 041

REACTIONS (6)
  - BRONCHOSPASM [None]
  - CHEST DISCOMFORT [None]
  - HYPOTENSION [None]
  - HYPOVENTILATION [None]
  - NO THERAPEUTIC RESPONSE [None]
  - RASH [None]
